FAERS Safety Report 9557598 (Version 1)
Quarter: 2013Q3

REPORT INFORMATION
  Report Type: Report from Study
  Country: US (occurrence: US)
  Receive Date: 20130926
  Receipt Date: 20130926
  Transmission Date: 20140515
  Serious: Yes (Congenital Anomaly)
  Sender: FDA-Public Use
  Company Number: US-VIIV HEALTHCARE LIMITED-A1042754A

PATIENT
  Sex: 0

DRUGS (6)
  1. LEXIVA [Suspect]
     Indication: ANTIRETROVIRAL THERAPY
     Dosage: 2800MG PER DAY
     Route: 064
  2. ZIDOVUDINE [Suspect]
     Indication: ANTIRETROVIRAL THERAPY
     Dosage: 600MG PER DAY
     Route: 064
  3. LAMIVUDINE + ZIDOVUDINE [Suspect]
     Indication: ANTIRETROVIRAL THERAPY
     Dosage: 2TAB PER DAY
     Route: 064
  4. PREZISTA [Suspect]
     Indication: ANTIRETROVIRAL THERAPY
     Route: 064
  5. VIREAD [Suspect]
     Indication: ANTIRETROVIRAL THERAPY
     Dosage: 300MG PER DAY
     Route: 064
  6. NORVIR [Suspect]
     Indication: ANTIRETROVIRAL THERAPY
     Dosage: 100MG PER DAY
     Route: 064

REACTIONS (2)
  - Micrognathia [Unknown]
  - Foetal exposure during pregnancy [Unknown]
